FAERS Safety Report 11746794 (Version 13)
Quarter: 2018Q1

REPORT INFORMATION
  Report Type: Spontaneous
  Country: US (occurrence: US)
  Receive Date: 20151117
  Receipt Date: 20180329
  Transmission Date: 20180508
  Serious: Yes (Hospitalization)
  Sender: FDA-Public Use
  Company Number: US-ACTELION PHARMACEUTICALS US, INC.-A-US2014-97188

PATIENT
  Age: 75 Year
  Sex: Female

DRUGS (19)
  1. FUROSEMIDE. [Concomitant]
     Active Substance: FUROSEMIDE
  2. SILDENAFIL. [Concomitant]
     Active Substance: SILDENAFIL
  3. TRAMADOL. [Concomitant]
     Active Substance: TRAMADOL
  4. LIDOCAINE. [Concomitant]
     Active Substance: LIDOCAINE
  5. PREDNISONE. [Concomitant]
     Active Substance: PREDNISONE
  6. TRACLEER [Suspect]
     Active Substance: BOSENTAN
     Indication: PULMONARY ARTERIAL HYPERTENSION
     Dosage: 62.5 MG, BID
     Route: 048
     Dates: start: 20131120
  7. CARTIA XT [Concomitant]
     Active Substance: DILTIAZEM HYDROCHLORIDE
  8. PERCOCET [Concomitant]
     Active Substance: ACETAMINOPHEN\OXYCODONE HYDROCHLORIDE
  9. CYCLOBENZAPRINE. [Concomitant]
     Active Substance: CYCLOBENZAPRINE
  10. HYDROCORTISONE. [Concomitant]
     Active Substance: HYDROCORTISONE
  11. VIBERZI [Concomitant]
     Active Substance: ELUXADOLINE
  12. LOMOTIL [Concomitant]
     Active Substance: ATROPINE SULFATE\DIPHENOXYLATE HYDROCHLORIDE
  13. COUMADIN [Concomitant]
     Active Substance: WARFARIN SODIUM
  14. POTASSIUM [Concomitant]
     Active Substance: POTASSIUM
  15. ORENITRAM [Concomitant]
     Active Substance: TREPROSTINIL
  16. TREPROSTINIL DIOLAMIN [Concomitant]
     Active Substance: TREPROSTINIL DIOLAMINE
  17. BYSTOLIC [Concomitant]
     Active Substance: NEBIVOLOL HYDROCHLORIDE
  18. TYVASO [Concomitant]
     Active Substance: TREPROSTINIL
  19. DILTIAZEM CD [Concomitant]
     Active Substance: DILTIAZEM

REACTIONS (16)
  - Sinusitis [Unknown]
  - Diarrhoea [Unknown]
  - Bronchitis [Recovered/Resolved]
  - Unevaluable event [Unknown]
  - Dizziness [Unknown]
  - Throat irritation [Unknown]
  - Dyspnoea [Unknown]
  - Drug dose omission [Unknown]
  - Oxygen saturation decreased [Unknown]
  - Oropharyngeal pain [Unknown]
  - Dyspnoea exertional [Recovering/Resolving]
  - Fluid retention [Unknown]
  - Lung disorder [Unknown]
  - Dysphonia [Unknown]
  - Respiratory tract infection [Unknown]
  - Chest discomfort [Unknown]
